FAERS Safety Report 21315559 (Version 1)
Quarter: 2022Q3

REPORT INFORMATION
  Report Type: Report from Study
  Country: DE (occurrence: None)
  Receive Date: 20220909
  Receipt Date: 20220909
  Transmission Date: 20221027
  Serious: Yes (Hospitalization)
  Sender: FDA-Public Use
  Company Number: DE-ROCHE-3173263

PATIENT
  Age: 32 Year
  Sex: Female
  Weight: 63 kg

DRUGS (15)
  1. ATEZOLIZUMAB [Suspect]
     Active Substance: ATEZOLIZUMAB
     Indication: Triple negative breast cancer
     Dosage: DATE OF LAST DOSE PRIOR TO SAE: 17/JUN/2022
     Route: 042
     Dates: start: 20220223
  2. PACLITAXEL [Suspect]
     Active Substance: PACLITAXEL
     Indication: Triple negative breast cancer
     Dosage: DATE OF LAST DOSE PRIOR TO SAE: 20/MAY/2022
     Route: 042
     Dates: start: 20220223
  3. CARBOPLATIN [Suspect]
     Active Substance: CARBOPLATIN
     Indication: Triple negative breast cancer
     Dosage: DATE OF LAST DOSE PRIOR TO SAE: 20.MAY/2022
     Route: 042
     Dates: start: 20220223
  4. EPIRUBICIN [Suspect]
     Active Substance: EPIRUBICIN
     Indication: Triple negative breast cancer
     Dosage: DATE OF LAST DOSE PRIOR TO SAE: 17/JUN/2022
     Route: 042
     Dates: start: 20220527
  5. CYCLOPHOSPHAMIDE [Suspect]
     Active Substance: CYCLOPHOSPHAMIDE
     Indication: Triple negative breast cancer
     Dosage: DATE OF LAST DOSE PRIOR TO SAE: 17/JUN/2022
     Route: 042
     Dates: start: 20220527
  6. LEVOTHYROXINE SODIUM\POTASSIUM IODIDE [Concomitant]
     Active Substance: LEVOTHYROXINE SODIUM\POTASSIUM IODIDE
  7. DEXAMETHASONE [Concomitant]
     Active Substance: DEXAMETHASONE
  8. CIMETIDIN [Concomitant]
  9. DIMETHINDENE [Concomitant]
     Active Substance: DIMETHINDENE
  10. GRANISETRON [Concomitant]
     Active Substance: GRANISETRON
  11. NEUPOGEN [Concomitant]
     Active Substance: FILGRASTIM
  12. AMOXICILLIN [Concomitant]
     Active Substance: AMOXICILLIN
  13. NETUPITANT [Concomitant]
     Active Substance: NETUPITANT
  14. MESNA [Concomitant]
     Active Substance: MESNA
     Dates: start: 20220527, end: 20220715
  15. BETAMETHASONE [Concomitant]
     Active Substance: BETAMETHASONE
     Dates: start: 20220728

REACTIONS (1)
  - Febrile neutropenia [Recovered/Resolved]

NARRATIVE: CASE EVENT DATE: 20220728
